FAERS Safety Report 15195822 (Version 2)
Quarter: 2019Q2

REPORT INFORMATION
  Report Type: Spontaneous
  Country: US (occurrence: US)
  Receive Date: 20180725
  Receipt Date: 20190521
  Transmission Date: 20190711
  Serious: No
  Sender: FDA-Public Use
  Company Number: US-PFIZER INC-2018293465

PATIENT
  Age: 80 Year
  Sex: Female
  Weight: 58.5 kg

DRUGS (11)
  1. MENEST [Suspect]
     Active Substance: ESTROGENS, ESTERIFIED
     Indication: HYSTERECTOMY
  2. CALCIUM + MAGNESIUM + ZINK [Concomitant]
     Dosage: UNK
  3. MENEST [Suspect]
     Active Substance: ESTROGENS, ESTERIFIED
     Indication: HOT FLUSH
     Dosage: 0.3 MG, 2X/DAY
     Route: 048
  4. COD LIVER OIL [Concomitant]
     Active Substance: COD LIVER OIL
     Dosage: UNK
  5. LUTEIN ZEAXANTHIN [Concomitant]
     Dosage: UNK
  6. MENEST [Suspect]
     Active Substance: ESTROGENS, ESTERIFIED
     Indication: HOT FLUSH
     Dosage: 0.625 MG, 1X/DAY
     Route: 048
     Dates: start: 201807
  7. MENEST [Suspect]
     Active Substance: ESTROGENS, ESTERIFIED
     Indication: VULVOVAGINAL DRYNESS
  8. PREDNISOLONE. [Concomitant]
     Active Substance: PREDNISOLONE
     Indication: GLAUCOMA SURGERY
     Dosage: EVERY 2 HOURS
     Dates: start: 20180604, end: 201811
  9. MENEST [Suspect]
     Active Substance: ESTROGENS, ESTERIFIED
     Indication: VULVOVAGINAL DRYNESS
  10. MENEST [Suspect]
     Active Substance: ESTROGENS, ESTERIFIED
     Indication: HYSTERECTOMY
  11. SYNTHROID [Concomitant]
     Active Substance: LEVOTHYROXINE SODIUM
     Indication: HYPOTHYROIDISM
     Dosage: 0.75 MG, 1X/DAY

REACTIONS (3)
  - Dose calculation error [Unknown]
  - Rash erythematous [Recovered/Resolved]
  - Rash pustular [Unknown]
